FAERS Safety Report 9747366 (Version 1)
Quarter: 2013Q4

REPORT INFORMATION
  Report Type: Spontaneous
  Country: US (occurrence: US)
  Receive Date: 20131212
  Receipt Date: 20131212
  Transmission Date: 20140711
  Serious: Yes (Hospitalization)
  Sender: FDA-Public Use
  Company Number: US-BIOGENIDEC-2013BI119730

PATIENT
  Age: 51 Year
  Sex: Female

DRUGS (5)
  1. AVONEX [Suspect]
     Indication: MULTIPLE SCLEROSIS
     Route: 030
     Dates: start: 20060820, end: 20070820
  2. AVONEX [Suspect]
     Indication: MULTIPLE SCLEROSIS
     Route: 030
     Dates: start: 20110401, end: 201208
  3. AVONEX [Suspect]
     Indication: MULTIPLE SCLEROSIS
     Route: 030
     Dates: start: 20120815
  4. BETASERON [Concomitant]
     Indication: MULTIPLE SCLEROSIS
  5. AMPYRA [Concomitant]
     Indication: GAIT DISTURBANCE

REACTIONS (11)
  - Nerve root compression [Unknown]
  - Heart rate decreased [Recovered/Resolved]
  - Multiple sclerosis [Unknown]
  - Fall [Recovered/Resolved]
  - Gait disturbance [Unknown]
  - Nerve compression [Unknown]
  - Musculoskeletal disorder [Unknown]
  - Sinus arrhythmia [Unknown]
  - Multiple sclerosis relapse [Recovered/Resolved]
  - Fatigue [Unknown]
  - Drug ineffective [Unknown]
